FAERS Safety Report 9903891 (Version 2)
Quarter: 2014Q1

REPORT INFORMATION
  Report Type: Spontaneous
  Country: US (occurrence: US)
  Receive Date: 20140218
  Receipt Date: 20140325
  Transmission Date: 20141002
  Serious: No
  Sender: FDA-Public Use
  Company Number: US-BIOGENIDEC-2014BI014266

PATIENT
  Sex: Female

DRUGS (10)
  1. TYSABRI [Suspect]
     Indication: MULTIPLE SCLEROSIS
     Route: 042
     Dates: start: 20080911, end: 20111104
  2. TYSABRI [Suspect]
     Indication: MALAISE
     Route: 042
     Dates: start: 20080911, end: 20111104
  3. TYSABRI [Suspect]
     Indication: NASOPHARYNGITIS
     Route: 042
     Dates: start: 20080911, end: 20111104
  4. TYSABRI [Suspect]
     Indication: COUGH
     Route: 042
     Dates: start: 20080911, end: 20111104
  5. TYSABRI [Suspect]
     Indication: RHINORRHOEA
     Route: 042
     Dates: start: 20080911, end: 20111104
  6. TYSABRI [Suspect]
     Indication: MULTIPLE SCLEROSIS
     Route: 042
     Dates: start: 20130218
  7. TYSABRI [Suspect]
     Indication: MALAISE
     Route: 042
     Dates: start: 20130218
  8. TYSABRI [Suspect]
     Indication: NASOPHARYNGITIS
     Route: 042
     Dates: start: 20130218
  9. TYSABRI [Suspect]
     Indication: COUGH
     Route: 042
     Dates: start: 20130218
  10. TYSABRI [Suspect]
     Indication: RHINORRHOEA
     Route: 042
     Dates: start: 20130218

REACTIONS (5)
  - Rhinorrhoea [Not Recovered/Not Resolved]
  - Cough [Not Recovered/Not Resolved]
  - Nasopharyngitis [Not Recovered/Not Resolved]
  - Malaise [Not Recovered/Not Resolved]
  - Infection [Not Recovered/Not Resolved]
